FAERS Safety Report 22067450 (Version 4)
Quarter: 2023Q2

REPORT INFORMATION
  Report Type: Spontaneous
  Country: BR (occurrence: BR)
  Receive Date: 20230307
  Receipt Date: 20230530
  Transmission Date: 20230722
  Serious: Yes (Death, Hospitalization, Other)
  Sender: FDA-Public Use
  Company Number: US-AUROBINDO-AUR-APL-2023-010496

PATIENT
  Age: 61 Year
  Sex: Male

DRUGS (1)
  1. BELEODAQ [Suspect]
     Active Substance: BELINOSTAT
     Indication: Product used for unknown indication
     Dosage: UNK(1 CYCLE) PATIENT HAD A DROP OUT DUE TO DEATH. DOCTOR DECIDED TO RESUME THE PRESCRIPTION OF THE D
     Route: 065

REACTIONS (3)
  - Death [Fatal]
  - Condition aggravated [Unknown]
  - Renal disorder [Unknown]
